FAERS Safety Report 7749770-5 (Version None)
Quarter: 2011Q3

REPORT INFORMATION
  Report Type: 
  Country: None (occurrence: None)
  Receive Date: 20110914
  Receipt Date: 20110907
  Transmission Date: 20111222
  Serious: Yes (Other)
  Sender: FDA-Public Use
  Company Number: US-BRISTOL-MYERS SQUIBB COMPANY-16038481

PATIENT
  Age: 82 Year
  Sex: Male
  Weight: 104 kg

DRUGS (11)
  1. LOVAZA [Concomitant]
  2. VITAMIN D [Concomitant]
  3. SOTALOL HCL [Concomitant]
  4. POTASSIUM [Concomitant]
  5. CENTRUM SILVER [Concomitant]
  6. ASCORBIC ACID [Concomitant]
  7. CRESTOR [Concomitant]
  8. WARFARIN SODIUM [Suspect]
     Indication: CORONARY ARTERY OCCLUSION
     Dosage: 1DF: 5MG SIX DAYS A WEEK AND 2.5 MG ONE DAY A WEEK
     Dates: start: 20100101
  9. IRON (FERROUS SULFATE) [Concomitant]
  10. ASPIRIN [Concomitant]
  11. ZINC [Concomitant]

REACTIONS (1)
  - BRONCHOPNEUMONIA [None]
